FAERS Safety Report 8990481 (Version 1)
Quarter: 2012Q4

REPORT INFORMATION
  Report Type: Report from Study
  Country: JP (occurrence: JP)
  Receive Date: 20121228
  Receipt Date: 20121228
  Transmission Date: 20130627
  Serious: Yes (Other)
  Sender: FDA-Public Use
  Company Number: JP-VERTEX PHARMACEUTICAL INC.-2012-020345

PATIENT
  Age: 60 Year
  Sex: Female

DRUGS (11)
  1. VX-950 (TELAPREVIR) [Suspect]
     Indication: CHRONIC HEPATITIS C
     Dosage: 1500 mg, qd
     Route: 048
     Dates: start: 20120620, end: 20120703
  2. VX-950 (TELAPREVIR) [Suspect]
     Dosage: 1000 mg, qd
     Route: 048
     Dates: start: 20120704
  3. VX-950 (TELAPREVIR) [Suspect]
     Dosage: 1000 mg, qd
     Route: 048
     Dates: start: 20120808, end: 20120911
  4. REBETOL [Suspect]
     Indication: CHRONIC HEPATITIS C
     Dosage: 400 mg, qd
     Route: 048
     Dates: start: 20120620, end: 20120703
  5. REBETOL [Suspect]
     Dosage: 200 mg, qd
     Route: 048
     Dates: start: 20120704, end: 20120911
  6. REBETOL [Suspect]
     Dosage: 400 mg, qd
     Route: 048
     Dates: start: 20120912, end: 20121204
  7. PEGINTRON                          /01543001/ [Suspect]
     Indication: CHRONIC HEPATITIS C
     Dosage: 1.5 ?g/kg, qw
     Route: 058
     Dates: start: 20120620, end: 20120626
  8. PEGINTRON                          /01543001/ [Suspect]
     Dosage: 0.75 ?g/kg, qw
     Route: 058
     Dates: start: 20120627, end: 20120710
  9. PEGINTRON                          /01543001/ [Suspect]
     Dosage: 1.5 ?g/kg, qw
     Route: 058
     Dates: start: 20120711, end: 20121128
  10. SAWATENE [Concomitant]
     Dosage: 1500 mg, qd
     Route: 048
     Dates: start: 20121024
  11. MUCODYNE [Concomitant]
     Dosage: 1500 mg, qd
     Route: 048
     Dates: start: 20121017, end: 20121023

REACTIONS (1)
  - Neutrophil count decreased [Not Recovered/Not Resolved]
